FAERS Safety Report 9947046 (Version 1)
Quarter: 2014Q1

REPORT INFORMATION
  Report Type: Report from Study
  Country: US (occurrence: US)
  Receive Date: 20140303
  Receipt Date: 20140303
  Transmission Date: 20141002
  Serious: No
  Sender: FDA-Public Use
  Company Number: US-ABBVIE-13P-163-1060476-00

PATIENT
  Age: 65 Year
  Sex: Female

DRUGS (20)
  1. HUMIRA [Suspect]
     Indication: PSORIASIS
     Dates: start: 20121130
  2. HUMIRA [Suspect]
     Dates: start: 20121207
  3. HUMIRA [Suspect]
  4. KLONOPIN [Concomitant]
     Indication: NERVOUS SYSTEM DISORDER
     Dosage: 1 IN THE AM, 1 IN THE PM
  5. CYMBALTA [Concomitant]
     Indication: DEPRESSION
     Dosage: 60MG DAILY
  6. ZYPREXA [Concomitant]
     Indication: DEPRESSION
     Dosage: 10MG DAILY
  7. ZYPREXA [Concomitant]
     Indication: PSYCHOTIC DISORDER
  8. KLOR-CON [Concomitant]
     Indication: CARDIOVASCULAR EVENT PROPHYLAXIS
     Dosage: 10MEQ DAILY
  9. DIOVAN [Concomitant]
     Indication: HYPERTENSION
  10. DIOVAN [Concomitant]
     Indication: PALPITATIONS
  11. REQUIP [Concomitant]
     Indication: RESTLESS LEGS SYNDROME
     Dosage: AT BEDTIME
  12. ZETIA [Concomitant]
     Indication: BLOOD CHOLESTEROL INCREASED
     Dosage: AT BEDTIME
  13. IBUPROFEN [Concomitant]
     Indication: ARTHRITIS
     Dosage: 600MG DAILY
  14. FISH OIL [Concomitant]
     Indication: PRODUCT USED FOR UNKNOWN INDICATION
  15. MVI [Concomitant]
     Indication: PRODUCT USED FOR UNKNOWN INDICATION
     Dosage: 1 TAB DAILY
  16. VITAMIN B-12 [Concomitant]
     Indication: PRODUCT USED FOR UNKNOWN INDICATION
     Dosage: 1 TAB DAILY
  17. VITAMIN D-3 [Concomitant]
     Indication: PRODUCT USED FOR UNKNOWN INDICATION
     Dosage: 2000 UNITS DAILY
  18. ASPIRIN [Concomitant]
     Indication: CARDIOVASCULAR EVENT PROPHYLAXIS
     Dosage: 81MG DAILY
  19. LASIX-K [Concomitant]
     Indication: PRODUCT USED FOR UNKNOWN INDICATION
  20. LASIX-K [Concomitant]

REACTIONS (5)
  - Venous insufficiency [Not Recovered/Not Resolved]
  - Drug ineffective [Not Recovered/Not Resolved]
  - Psoriasis [Not Recovered/Not Resolved]
  - Joint swelling [Not Recovered/Not Resolved]
  - Skin lesion [Not Recovered/Not Resolved]
